FAERS Safety Report 6439654-7 (Version None)
Quarter: 2009Q4

REPORT INFORMATION
  Report Type: 
  Country: None (occurrence: None)
  Receive Date: 20091113
  Receipt Date: 20091110
  Transmission Date: 20100525
  Serious: Yes (Hospitalization, Other)
  Sender: FDA-Public Use
  Company Number: US-ROXANE LABORATORIES, INC.-2009-RO-01149RO

PATIENT
  Age: 51 Year
  Sex: Female

DRUGS (13)
  1. DEXAMETHASONE [Suspect]
     Indication: CRANIOTOMY
     Dosage: 4 MG
     Dates: start: 20070101
  2. DEXAMETHASONE [Suspect]
     Indication: GLIOBLASTOMA
  3. PHENYTOIN [Suspect]
     Indication: PROPHYLAXIS
     Dates: start: 20070101
  4. TEMOZOLOMIDE [Suspect]
     Indication: CHEMOTHERAPY
  5. DEMECLOCYCLINE HCL [Suspect]
     Indication: HYPONATRAEMIA
     Dosage: 900 MG
  6. SALT [Suspect]
     Dosage: 9 G
  7. METFORMIN HCL [Suspect]
  8. NOREPINEPHRINE BITARTRATE [Suspect]
     Indication: VASOPRESSIVE THERAPY
  9. VANCOMYCIN [Suspect]
     Indication: ANTIBIOTIC THERAPY
  10. PIPERACILLIN AND TAZOBACTAM [Suspect]
     Indication: ANTIBIOTIC THERAPY
  11. DESMOPRESSIN [Suspect]
  12. ALBENDAZOLE [Suspect]
     Indication: STRONGYLOIDIASIS
     Dosage: 800 MG
  13. IVERMECTIN [Suspect]
     Indication: STRONGYLOIDIASIS
     Dosage: 12 MG

REACTIONS (15)
  - BRONCHOPULMONARY ASPERGILLOSIS [None]
  - CEREBRAL INFARCTION [None]
  - CYTOMEGALOVIRUS INFECTION [None]
  - DIABETES INSIPIDUS [None]
  - ENCEPHALOPATHY [None]
  - ENTEROCOCCAL INFECTION [None]
  - ESCHERICHIA INFECTION [None]
  - HERPES SIMPLEX [None]
  - HYPONATRAEMIA [None]
  - PNEUMONIA KLEBSIELLA [None]
  - RASH MORBILLIFORM [None]
  - RESPIRATORY FAILURE [None]
  - STRONGYLOIDIASIS [None]
  - SYSTEMIC INFLAMMATORY RESPONSE SYNDROME [None]
  - VASCULITIS [None]
